FAERS Safety Report 9263780 (Version 2)
Quarter: 2013Q3

REPORT INFORMATION
  Report Type: Spontaneous
  Country: IT (occurrence: IT)
  Receive Date: 20130430
  Receipt Date: 20130909
  Transmission Date: 20140515
  Serious: Yes (Other)
  Sender: FDA-Public Use
  Company Number: IT-TEVA-399465ISR

PATIENT
  Sex: Female

DRUGS (2)
  1. BRUFEN [Suspect]
  2. ACIDO ACETILSALICILICO [Suspect]

REACTIONS (4)
  - Abdominal pain upper [Recovering/Resolving]
  - Diarrhoea [Recovering/Resolving]
  - Melaena [Recovering/Resolving]
  - Nausea [Recovering/Resolving]
